FAERS Safety Report 6107378-1 (Version None)
Quarter: 2009Q1

REPORT INFORMATION
  Report Type: 
  Country: None (occurrence: None)
  Receive Date: 20090309
  Receipt Date: 20090302
  Transmission Date: 20090719
  Serious: Yes (Hospitalization)
  Sender: FDA-Public Use
  Company Number: FR-BRISTOL-MYERS SQUIBB COMPANY-14101117

PATIENT
  Age: 85 Year
  Sex: Female
  Weight: 80 kg

DRUGS (5)
  1. CETUXIMAB [Suspect]
     Indication: SQUAMOUS CELL CARCINOMA OF SKIN
     Dosage: LAST DOSE RECEIVED ON 14-FEB-2008
     Route: 042
     Dates: start: 20080111, end: 20080214
  2. GLUCOVANCE [Concomitant]
     Indication: DIABETES MELLITUS
     Route: 048
  3. EZETROL [Concomitant]
     Indication: DYSLIPIDAEMIA
     Route: 048
  4. DI-ANTALVIC [Concomitant]
     Indication: ARTHRALGIA
     Route: 048
  5. LACTEOL FORT [Concomitant]
     Indication: GASTROINTESTINAL DISORDER
     Dosage: TABLET
     Route: 048

REACTIONS (1)
  - ALVEOLITIS ALLERGIC [None]
